FAERS Safety Report 10273693 (Version 1)
Quarter: 2014Q2

REPORT INFORMATION
  Report Type: Spontaneous
  Country: FR (occurrence: None)
  Receive Date: 20140630
  Receipt Date: 20140630
  Transmission Date: 20141212
  Serious: Yes (Hospitalization)
  Sender: FDA-Public Use
  Company Number: AUR-APL-2014-06748

PATIENT
  Age: 66 Year
  Sex: Female

DRUGS (10)
  1. METFORMIN (METFORMIN) UNKNOWN, UNKNOWN [Suspect]
     Indication: PRODUCT USED FOR UNKNOWN INDICATION
     Dosage: 5 G, TOTAL, ORAL
     Route: 048
     Dates: start: 20140523, end: 20140523
  2. AMLOR (AMLODIPINE BESILATE) [Suspect]
     Indication: PRODUCT USED FOR UNKNOWN INDICATION
     Route: 048
  3. SEROPLEX (ESCITALOPRAM OXALATE) [Suspect]
     Indication: PRODUCT USED FOR UNKNOWN INDICATION
     Dates: start: 20140523, end: 20140523
  4. TEMESTA /00273201/ [Suspect]
     Indication: PRODUCT USED FOR UNKNOWN INDICATION
     Dates: start: 20140523
  5. BROMAZEPAM (BROMAZEPAM) [Suspect]
     Indication: PRODUCT USED FOR UNKNOWN INDICATION
     Route: 048
  6. TERCIAN /00759301/ (CYAMEMAZINE) [Concomitant]
  7. MICARDIS (TELMISARTAN) [Concomitant]
  8. BISOPROLOL (BISOPROLOL) [Concomitant]
  9. TAHOR (ATORVASTATIN CALCIUM) [Concomitant]
  10. NOVONORM (REPAGLINIDE) [Concomitant]

REACTIONS (5)
  - Intentional overdose [None]
  - Coma [None]
  - Hypotension [None]
  - Hypoxia [None]
  - Bradycardia [None]
